APPROVED DRUG PRODUCT: TRIPLE SULFA
Active Ingredient: TRIPLE SULFA (SULFABENZAMIDE;SULFACETAMIDE;SULFATHIAZOLE)
Strength: 3.7%;2.86%;3.42%
Dosage Form/Route: CREAM;VAGINAL
Application: A086424 | Product #001
Applicant: E FOUGERA DIV ALTANA INC
Approved: Approved Prior to Jan 1, 1982 | RLD: No | RS: No | Type: DISCN